FAERS Safety Report 6963813-8 (Version None)
Quarter: 2010Q3

REPORT INFORMATION
  Report Type: 
  Country: None (occurrence: None)
  Receive Date: 20100830
  Receipt Date: 20100421
  Transmission Date: 20110219
  Serious: Yes (Death)
  Sender: FDA-Public Use
  Company Number: 009567

PATIENT
  Sex: Male

DRUGS (1)
  1. SAMSCA [Suspect]
     Dosage: 30 MG, ORAL
     Route: 048

REACTIONS (1)
  - METASTATIC BRONCHIAL CARCINOMA [None]
